FAERS Safety Report 23749609 (Version 8)
Quarter: 2024Q3

REPORT INFORMATION
  Report Type: Report from Study
  Country: US (occurrence: US)
  Receive Date: 20240416
  Receipt Date: 20240816
  Transmission Date: 20241017
  Serious: Yes (Hospitalization, Other)
  Sender: ABBVIE
  Company Number: US-ABBVIE-5693852

PATIENT
  Sex: Male

DRUGS (2)
  1. RINVOQ [Suspect]
     Active Substance: UPADACITINIB
     Indication: Colitis ulcerative
     Route: 048
     Dates: start: 20230612, end: 20240411
  2. RINVOQ [Suspect]
     Active Substance: UPADACITINIB
     Indication: Colitis ulcerative
     Dosage: START DATE: APR 2024
     Route: 048

REACTIONS (27)
  - Bladder cancer recurrent [Recovering/Resolving]
  - Acne [Recovering/Resolving]
  - Blood pressure decreased [Unknown]
  - Inflammation [Recovered/Resolved]
  - Skin disorder [Unknown]
  - Malaise [Recovering/Resolving]
  - Gait disturbance [Recovering/Resolving]
  - Sinus congestion [Recovering/Resolving]
  - Streptococcus test positive [Recovering/Resolving]
  - Dizziness [Recovering/Resolving]
  - Pollakiuria [Unknown]
  - Ear disorder [Unknown]
  - Stomatitis [Recovering/Resolving]
  - Frustration tolerance decreased [Recovering/Resolving]
  - Ageusia [Recovering/Resolving]
  - Rash papular [Recovering/Resolving]
  - Illness [Unknown]
  - Hypotension [Recovering/Resolving]
  - Hydrocephalus [Recovering/Resolving]
  - Lipoma [Recovering/Resolving]
  - Balance disorder [Recovering/Resolving]
  - Gastrointestinal disorder [Unknown]
  - Red blood cell count decreased [Recovering/Resolving]
  - Blood pressure increased [Recovering/Resolving]
  - Full blood count decreased [Unknown]
  - Vertigo positional [Unknown]
  - Blood disorder [Recovering/Resolving]

NARRATIVE: CASE EVENT DATE: 20230101
